FAERS Safety Report 14565282 (Version 2)
Quarter: 2018Q3

REPORT INFORMATION
  Report Type: Report from Study
  Country: CO (occurrence: CO)
  Receive Date: 20180223
  Receipt Date: 20180704
  Transmission Date: 20181010
  Serious: Yes (Other)
  Sender: FDA-Public Use
  Company Number: CO-EMD SERONO-E2B_90022802

PATIENT
  Age: 12 Year
  Sex: Female

DRUGS (2)
  1. SAIZEN [Suspect]
     Active Substance: SOMATROPIN
     Indication: GROWTH HORMONE DEFICIENCY
  2. SAIZEN [Suspect]
     Active Substance: SOMATROPIN
     Indication: TURNER^S SYNDROME
     Dosage: AMPOULE
     Route: 058
     Dates: start: 20120731

REACTIONS (3)
  - Arrhythmia [Recovering/Resolving]
  - Spinal deformity [Unknown]
  - Scoliosis [Recovering/Resolving]

NARRATIVE: CASE EVENT DATE: 20170901
